FAERS Safety Report 9059102 (Version 1)
Quarter: 2013Q1

REPORT INFORMATION
  Report Type: Spontaneous
  Country: US (occurrence: US)
  Receive Date: 20130211
  Receipt Date: 20130211
  Transmission Date: 20140127
  Serious: No
  Sender: FDA-Public Use
  Company Number: US-BRISTOL-MYERS SQUIBB COMPANY-16852980

PATIENT
  Sex: Male

DRUGS (3)
  1. ONGLYZA TABS 5 MG [Suspect]
  2. METFORMIN HCL [Suspect]
  3. GLIPIZIDE [Suspect]

REACTIONS (1)
  - Weight increased [Unknown]
